FAERS Safety Report 8489021 (Version 5)
Quarter: 2013Q4

REPORT INFORMATION
  Report Type: Spontaneous
  Country: US (occurrence: US)
  Receive Date: 20120402
  Receipt Date: 20131031
  Transmission Date: 20140711
  Serious: Yes (Life-Threatening, Hospitalization)
  Sender: FDA-Public Use
  Company Number: US-009507513-1207USA006712

PATIENT
  Sex: Male

DRUGS (2)
  1. INVANZ [Suspect]
     Indication: PROPHYLAXIS
     Route: 042
  2. VANCOMYCIN [Concomitant]

REACTIONS (1)
  - Clostridium difficile infection [Recovered/Resolved]
